FAERS Safety Report 10793415 (Version 7)
Quarter: 2020Q2

REPORT INFORMATION
  Report Type: Spontaneous
  Country: US (occurrence: US)
  Receive Date: 20150213
  Receipt Date: 20200409
  Transmission Date: 20200713
  Serious: No
  Sender: FDA-Public Use
  Company Number: US-PFIZER INC-2015056689

PATIENT
  Age: 50 Year
  Sex: Female

DRUGS (1)
  1. LYRICA [Suspect]
     Active Substance: PREGABALIN
     Dosage: UNK, ONCE A DAY

REACTIONS (8)
  - Myalgia [Unknown]
  - Irritability [Not Recovered/Not Resolved]
  - Intentional product use issue [Unknown]
  - Fibromyalgia [Not Recovered/Not Resolved]
  - Musculoskeletal stiffness [Unknown]
  - Intentional product misuse [Unknown]
  - Sinusitis [Unknown]
  - Pain [Unknown]
